FAERS Safety Report 19490431 (Version 2)
Quarter: 2021Q3

REPORT INFORMATION
  Report Type: Spontaneous
  Country: US (occurrence: US)
  Receive Date: 20210705
  Receipt Date: 20210824
  Transmission Date: 20211014
  Serious: Yes (Other)
  Sender: FDA-Public Use
  Company Number: US-JNJFOC-20210659754

PATIENT
  Age: 4 Decade
  Sex: Female

DRUGS (4)
  1. AMLODIPINE [Concomitant]
     Active Substance: AMLODIPINE BESYLATE
     Indication: HYPERTENSION
  2. CLONIDINE. [Concomitant]
     Active Substance: CLONIDINE
     Indication: HYPERTENSION
  3. ELMIRON [Suspect]
     Active Substance: PENTOSAN POLYSULFATE SODIUM
     Indication: CYSTITIS INTERSTITIAL
     Dosage: TOOK 100MG PILL 2 TIMES A DAY
     Route: 048
     Dates: start: 2017, end: 2018
  4. METFORMIN [Concomitant]
     Active Substance: METFORMIN HYDROCHLORIDE
     Indication: DIABETES MELLITUS
     Dates: start: 2011

REACTIONS (9)
  - Photophobia [Unknown]
  - Glaucoma [Unknown]
  - Visual impairment [Unknown]
  - Off label use [Unknown]
  - Incorrect dose administered [Unknown]
  - Hallucination, visual [Not Recovered/Not Resolved]
  - Vision blurred [Unknown]
  - Blindness unilateral [Unknown]
  - Delayed dark adaptation [Unknown]

NARRATIVE: CASE EVENT DATE: 2017
